FAERS Safety Report 10189075 (Version 1)
Quarter: 2014Q2

REPORT INFORMATION
  Report Type: Spontaneous
  Country: US (occurrence: None)
  Receive Date: 20140521
  Receipt Date: 20140521
  Transmission Date: 20141212
  Serious: No
  Sender: FDA-Public Use
  Company Number: None

PATIENT
  Age: 34 Year
  Sex: Female
  Weight: 95.26 kg

DRUGS (2)
  1. CIPROFLOXACN [Suspect]
     Indication: URINARY TRACT INFECTION
     Route: 048
     Dates: start: 20140509, end: 20140510
  2. CIPROFLOXACN [Suspect]
     Indication: PROPHYLAXIS
     Route: 048
     Dates: start: 20140509, end: 20140510

REACTIONS (8)
  - Arthralgia [None]
  - Myalgia [None]
  - Headache [None]
  - Pruritus generalised [None]
  - Tendon pain [None]
  - Arthralgia [None]
  - Pain in extremity [None]
  - Burning sensation [None]
